FAERS Safety Report 6040778-7 (Version None)
Quarter: 2009Q1

REPORT INFORMATION
  Report Type: 
  Country: None (occurrence: None)
  Receive Date: 20090116
  Receipt Date: 20080523
  Transmission Date: 20090719
  Serious: No
  Sender: FDA-Public Use
  Company Number: US-BRISTOL-MYERS SQUIBB COMPANY-14202709

PATIENT
  Age: 65 Year
  Sex: Male
  Weight: 91 kg

DRUGS (14)
  1. ABILIFY [Suspect]
     Indication: SCHIZOAFFECTIVE DISORDER
     Dates: start: 20080519, end: 20080523
  2. AVODART [Concomitant]
  3. SYNTHROID [Concomitant]
  4. ENALAPRIL MALEATE [Concomitant]
  5. LYRICA [Concomitant]
  6. REQUIP [Concomitant]
  7. MECLIZINE [Concomitant]
  8. TRIAMCINOLONE [Concomitant]
  9. VITAMIN E [Concomitant]
  10. MULTI-VITAMIN [Concomitant]
     Dosage: CVS SENIOR MULTIVITAMIN.
  11. IBUPROFEN [Concomitant]
  12. GARLIC [Concomitant]
     Dosage: TABLET.
  13. ASCORBIC ACID [Concomitant]
  14. CHONDROITIN SULFATE + GLUCOSAMINE [Concomitant]

REACTIONS (3)
  - FATIGUE [None]
  - INSOMNIA [None]
  - NERVOUSNESS [None]
